APPROVED DRUG PRODUCT: OPTIVAR
Active Ingredient: AZELASTINE HYDROCHLORIDE
Strength: 0.05% **Federal Register determination that product was not discontinued or withdrawn for safety or effectiveness reasons**
Dosage Form/Route: SOLUTION/DROPS;OPHTHALMIC
Application: N021127 | Product #001
Applicant: RISING PHARMA HOLDINGS INC
Approved: May 22, 2000 | RLD: Yes | RS: No | Type: DISCN